FAERS Safety Report 19126033 (Version 1)
Quarter: 2021Q2

REPORT INFORMATION
  Report Type: Spontaneous
  Country: US (occurrence: US)
  Receive Date: 20210412
  Receipt Date: 20210412
  Transmission Date: 20210717
  Serious: Yes (Other)
  Sender: FDA-Public Use
  Company Number: US-AMERICAN REGENT INC-2021000894

PATIENT
  Age: 69 Year
  Sex: Male

DRUGS (6)
  1. HEPARIN FLUSH [Concomitant]
     Active Substance: HEPARIN SODIUM
     Indication: CATHETER MANAGEMENT
     Dosage: UNK
     Route: 065
  2. DEXAMETHASONE SODIUM PHOSPHATE INJECTION, USP (4901?25) [Suspect]
     Active Substance: DEXAMETHASONE SODIUM PHOSPHATE
     Indication: COVID-19
     Dosage: 8 MILLIGRAM DAILY
     Route: 065
  3. OXYGEN. [Concomitant]
     Active Substance: OXYGEN
     Indication: COVID-19
     Dosage: 35 LITER ON VAPOTHERM
  4. SODIUM POLYSTYRENE SULFONATE. [Concomitant]
     Active Substance: SODIUM POLYSTYRENE SULFONATE
     Indication: ADRENAL INSUFFICIENCY
     Dosage: 30 GRAM, QD
     Route: 065
  5. FLUDROCORTISONE [Concomitant]
     Active Substance: FLUDROCORTISONE
     Indication: ADRENAL INSUFFICIENCY
     Dosage: 0.2 MILLIGRAM, QD
     Route: 065
  6. AZITHROMYCIN ANHYDROUS. [Concomitant]
     Active Substance: AZITHROMYCIN ANHYDROUS
     Indication: COVID-19
     Dosage: UNK
     Route: 065

REACTIONS (3)
  - Metabolic alkalosis [Unknown]
  - Product use in unapproved indication [Unknown]
  - Adrenal insufficiency [Unknown]
